FAERS Safety Report 6173210-3 (Version None)
Quarter: 2009Q2

REPORT INFORMATION
  Report Type: 
  Country: None (occurrence: None)
  Receive Date: 20090430
  Receipt Date: 20090421
  Transmission Date: 20091009
  Serious: Yes (Death)
  Sender: FDA-Public Use
  Company Number: CN-PFIZER INC-2009203667

PATIENT

DRUGS (3)
  1. CEFOPERAZONE SODIUM, SULBACTAM SODIUM [Suspect]
     Indication: ASTHMA
     Route: 042
  2. AMINOPHYLLINE [Concomitant]
     Route: 042
  3. DEXAMETHASONE TAB [Concomitant]
     Route: 042

REACTIONS (5)
  - CYANOSIS [None]
  - ILL-DEFINED DISORDER [None]
  - MOUTH BREATHING [None]
  - OROPHARYNGEAL PAIN [None]
  - PRURITUS [None]
